FAERS Safety Report 9631181 (Version 1)
Quarter: 2013Q4

REPORT INFORMATION
  Report Type: Spontaneous
  Country: US (occurrence: None)
  Receive Date: 20131016
  Receipt Date: 20131016
  Transmission Date: 20140711
  Serious: Yes (Death)
  Sender: FDA-Public Use
  Company Number: None

PATIENT
  Age: 30 Year
  Sex: Male
  Weight: 70.7 kg

DRUGS (7)
  1. ENOXAPARIN [Suspect]
     Route: 058
     Dates: start: 20130730, end: 20130804
  2. PROGRAF [Concomitant]
  3. PREDNISONE [Concomitant]
  4. WARFARIN [Concomitant]
  5. ATENOLOL [Concomitant]
  6. MYCOPHENOLATE MOFETIL [Concomitant]
  7. (CALCIUM CARBONATE, VITAMIN D3, FERROUS SULFATE, MAGNESIUM OXIDE DAILY) [Concomitant]

REACTIONS (4)
  - Renal disorder [None]
  - Oedema [None]
  - Loss of consciousness [None]
  - Cardio-respiratory arrest [None]
